FAERS Safety Report 24608703 (Version 1)
Quarter: 2024Q4

REPORT INFORMATION
  Report Type: Spontaneous
  Country: SY (occurrence: SY)
  Receive Date: 20241112
  Receipt Date: 20241112
  Transmission Date: 20250114
  Serious: Yes (Other)
  Sender: AMNEAL
  Company Number: SY-AMNEAL PHARMACEUTICALS-2024-AMRX-04034

PATIENT
  Age: 26 Year
  Sex: Female

DRUGS (3)
  1. MAGNESIUM SULFATE [Suspect]
     Active Substance: MAGNESIUM SULFATE
     Indication: Pre-eclampsia
     Dosage: UNK
     Route: 065
  2. ASPIRIN [Concomitant]
     Active Substance: ASPIRIN
     Indication: Blood pressure abnormal
     Dosage: UNK
     Route: 065
  3. ATORVASTATIN [Concomitant]
     Active Substance: ATORVASTATIN
     Indication: Blood pressure abnormal
     Dosage: UNK
     Route: 065

REACTIONS (2)
  - Myasthenia gravis [Recovering/Resolving]
  - Exposure during pregnancy [Unknown]
